FAERS Safety Report 9107246 (Version 1)
Quarter: 2013Q1

REPORT INFORMATION
  Report Type: Report from Study
  Country: CA (occurrence: CA)
  Receive Date: 20130221
  Receipt Date: 20130221
  Transmission Date: 20140127
  Serious: Yes (Other)
  Sender: FDA-Public Use
  Company Number: CA-JNJFOC-20130207906

PATIENT
  Sex: Male
  Weight: 156.95 kg

DRUGS (11)
  1. REMICADE [Suspect]
     Indication: PSORIASIS
     Route: 042
     Dates: start: 20110817
  2. METHOTREXATE [Suspect]
     Indication: PRODUCT USED FOR UNKNOWN INDICATION
     Route: 065
  3. METHOTREXATE [Suspect]
     Indication: PRODUCT USED FOR UNKNOWN INDICATION
     Route: 065
     Dates: start: 201301
  4. FOLIC ACID [Concomitant]
     Dosage: 5 QD
     Route: 065
  5. LEVEMIR [Concomitant]
     Dosage: 75 S/C
     Route: 058
  6. RAMIPRIL [Concomitant]
     Dosage: 10 QD
     Route: 065
  7. ULTRAM [Concomitant]
     Dosage: 50 BID
     Route: 065
  8. METFORMIN [Concomitant]
     Dosage: 500 BID
     Route: 065
  9. VIMOVO [Concomitant]
     Dosage: BID
     Route: 065
  10. LIPITOR [Concomitant]
     Route: 065
  11. ALL OTHER THERAPEUTIC PRODUCTS [Concomitant]
     Route: 065

REACTIONS (1)
  - Oesophagitis [Unknown]
